FAERS Safety Report 6211863-1 (Version None)
Quarter: 2009Q2

REPORT INFORMATION
  Report Type: 
  Country: None (occurrence: None)
  Receive Date: 20090528
  Receipt Date: 20090512
  Transmission Date: 20091009
  Serious: Yes (Life-Threatening, Hospitalization, Disabling)
  Sender: FDA-Public Use
  Company Number: WAES 0903FRA00103

PATIENT
  Age: 65 Year
  Sex: Male

DRUGS (10)
  1. CAP VORINOSTAT [Suspect]
     Indication: NON-SMALL CELL LUNG CANCER
     Dosage: 400 MG/DAILY PO; 400 MG/DAILY PO; 400 MG/DAILY PO
     Route: 048
     Dates: start: 20090221, end: 20090302
  2. CAP VORINOSTAT [Suspect]
     Indication: NON-SMALL CELL LUNG CANCER
     Dosage: 400 MG/DAILY PO; 400 MG/DAILY PO; 400 MG/DAILY PO
     Route: 048
     Dates: start: 20090316, end: 20090317
  3. CAP VORINOSTAT [Suspect]
     Indication: NON-SMALL CELL LUNG CANCER
     Dosage: 400 MG/DAILY PO; 400 MG/DAILY PO; 400 MG/DAILY PO
     Route: 048
     Dates: start: 20090320
  4. CISPLATIN [Suspect]
     Indication: NON-SMALL CELL LUNG CANCER
     Dosage: 75 MG/M2/ DAILY IV; 75 MG/M2 /DAILY IV;
     Route: 042
     Dates: start: 20090223, end: 20090223
  5. CISPLATIN [Suspect]
     Indication: NON-SMALL CELL LUNG CANCER
     Dosage: 75 MG/M2/ DAILY IV; 75 MG/M2 /DAILY IV;
     Route: 042
     Dates: start: 20090320, end: 20090320
  6. GEMCITABINE [Suspect]
     Indication: NON-SMALL CELL LUNG CANCER
     Dosage: 1250 MG/M2 /DAILY IV; 1250 MG/M2 /DAILY IV
     Route: 042
     Dates: start: 20090223, end: 20090223
  7. GEMCITABINE [Suspect]
     Indication: NON-SMALL CELL LUNG CANCER
     Dosage: 1250 MG/M2 /DAILY IV; 1250 MG/M2 /DAILY IV
     Route: 042
     Dates: start: 20090320, end: 20090320
  8. NOROXIN [Suspect]
     Dosage: PO
     Route: 048
     Dates: start: 20090322
  9. EMEND [Concomitant]
  10. AMLODIPINE BESYLATE [Concomitant]

REACTIONS (3)
  - DIALYSIS [None]
  - NEUTROPENIA [None]
  - RENAL FAILURE ACUTE [None]
